FAERS Safety Report 8008667-6 (Version None)
Quarter: 2011Q4

REPORT INFORMATION
  Report Type: 
  Country: None (occurrence: None)
  Receive Date: 20111227
  Receipt Date: 20111213
  Transmission Date: 20120403
  Serious: Yes (Hospitalization)
  Sender: FDA-Public Use
  Company Number: FR-MERCK-1105FRA00027

PATIENT
  Age: 66 Year
  Sex: Male

DRUGS (6)
  1. METHYLPREDNISOLONE SODIUM SUCCINATE [Concomitant]
     Route: 042
     Dates: start: 20110419, end: 20110421
  2. IFOSFAMIDE [Suspect]
     Indication: SARCOMA
     Route: 042
     Dates: start: 20110419, end: 20110421
  3. EMEND [Suspect]
     Route: 048
     Dates: start: 20110420, end: 20110421
  4. EMEND [Suspect]
     Route: 048
     Dates: start: 20110419, end: 20110419
  5. DOXORUBICIN [Concomitant]
     Indication: SARCOMA
     Route: 042
     Dates: start: 20110419, end: 20110420
  6. ONDANSETRON [Concomitant]
     Route: 048
     Dates: start: 20110419, end: 20110422

REACTIONS (2)
  - CONVULSION [None]
  - ENCEPHALOPATHY [None]
